FAERS Safety Report 4849310-4 (Version None)
Quarter: 2005Q4

REPORT INFORMATION
  Report Type: 
  Country: None (occurrence: None)
  Receive Date: 20051209
  Receipt Date: 20051129
  Transmission Date: 20060501
  Serious: Yes (Other)
  Sender: FDA-Public Use
  Company Number: US-JNJFOC-20051201221

PATIENT
  Sex: Male
  Weight: 30.39 kg

DRUGS (1)
  1. CONCERTA [Suspect]
     Route: 048

REACTIONS (2)
  - ANOREXIA [None]
  - GROWTH RETARDATION [None]
